FAERS Safety Report 5895377-4 (Version None)
Quarter: 2008Q3

REPORT INFORMATION
  Report Type: 
  Country: None (occurrence: None)
  Receive Date: 20080923
  Receipt Date: 20080923
  Transmission Date: 20090109
  Serious: Yes (Other)
  Sender: FDA-Public Use
  Company Number: None

PATIENT
  Age: 48 Year
  Sex: Female
  Weight: 57.6068 kg

DRUGS (1)
  1. HUMIRA [Suspect]
     Indication: ANKYLOSING SPONDYLITIS
     Dosage: 40MG TWICE A MONTH SQ
     Route: 058
     Dates: start: 20071115, end: 20080330

REACTIONS (5)
  - ABSCESS [None]
  - FEELING ABNORMAL [None]
  - RASH PRURITIC [None]
  - SECRETION DISCHARGE [None]
  - URTICARIA [None]
